FAERS Safety Report 22595210 (Version 2)
Quarter: 2023Q2

REPORT INFORMATION
  Report Type: Spontaneous
  Country: AT (occurrence: AT)
  Receive Date: 20230613
  Receipt Date: 20230623
  Transmission Date: 20230722
  Serious: Yes (Hospitalization, Other)
  Sender: FDA-Public Use
  Company Number: AT-TEVA-2023-AT-2894581

PATIENT
  Age: 73 Year
  Sex: Male

DRUGS (6)
  1. PEMETREXED [Suspect]
     Active Substance: PEMETREXED
     Indication: Immunochemotherapy
     Dosage: UNK
     Route: 065
  2. PEMETREXED [Suspect]
     Active Substance: PEMETREXED
     Indication: Non-small cell lung cancer metastatic
  3. CARBOPLATIN [Suspect]
     Active Substance: CARBOPLATIN
     Indication: Immunochemotherapy
     Dosage: UNK
     Route: 065
  4. CARBOPLATIN [Suspect]
     Active Substance: CARBOPLATIN
     Indication: Non-small cell lung cancer metastatic
  5. PEMBROLIZUMAB [Suspect]
     Active Substance: PEMBROLIZUMAB
     Indication: Immunochemotherapy
     Dosage: UNK
     Route: 065
  6. PEMBROLIZUMAB [Suspect]
     Active Substance: PEMBROLIZUMAB
     Indication: Non-small cell lung cancer metastatic

REACTIONS (2)
  - Febrile neutropenia [Recovered/Resolved]
  - Immune-mediated enterocolitis [Recovered/Resolved]
